FAERS Safety Report 8598354-8 (Version None)
Quarter: 2012Q3

REPORT INFORMATION
  Report Type: 
  Country: None (occurrence: None)
  Receive Date: 20120816
  Receipt Date: 20120806
  Transmission Date: 20120928
  Serious: No
  Sender: FDA-Public Use
  Company Number: JP-ELI_LILLY_AND_COMPANY-JP201206004908

PATIENT
  Sex: Female
  Weight: 42 kg

DRUGS (4)
  1. CISPLATIN [Concomitant]
     Indication: GALLBLADDER CANCER STAGE IV
     Dosage: 70 MG, OTHER
     Route: 042
     Dates: start: 20110801, end: 20110801
  2. CISPLATIN [Concomitant]
     Dosage: 70 MG, UNK
     Route: 042
     Dates: start: 20110829, end: 20111205
  3. GEMZAR [Suspect]
     Indication: GALLBLADDER CANCER STAGE IV
     Dosage: 1500 MG, OTHER
     Route: 042
     Dates: start: 20110725, end: 20110829
  4. GEMZAR [Suspect]
     Dosage: 1300 MG, UNK
     Route: 042
     Dates: start: 20111010, end: 20111205

REACTIONS (5)
  - DECREASED APPETITE [None]
  - NAUSEA [None]
  - PLATELET COUNT DECREASED [None]
  - HAEMOGLOBIN DECREASED [None]
  - WHITE BLOOD CELL COUNT DECREASED [None]
